FAERS Safety Report 11512527 (Version 1)
Quarter: 2015Q3

REPORT INFORMATION
  Report Type: Spontaneous
  Country: US (occurrence: None)
  Receive Date: 20150915
  Receipt Date: 20150915
  Transmission Date: 20151125
  Serious: Yes (Disabling)
  Sender: FDA-Public Use
  Company Number: None

PATIENT
  Age: 65 Year
  Sex: Female
  Weight: 56.7 kg

DRUGS (20)
  1. IMITREX [Concomitant]
     Active Substance: SUMATRIPTAN\SUMATRIPTAN SUCCINATE
  2. ACUPUNCTURE [Concomitant]
     Active Substance: DEVICE
  3. ZANAFLEX [Concomitant]
     Active Substance: TIZANIDINE HYDROCHLORIDE
  4. INDERAL ER (MIGRAINE) [Concomitant]
  5. PHENAZOPYRIDINE. [Concomitant]
     Active Substance: PHENAZOPYRIDINE
  6. LYRICA [Suspect]
     Active Substance: PREGABALIN
     Indication: NEURITIS
     Route: 048
     Dates: start: 20150702, end: 20150703
  7. CARAFATE [Concomitant]
     Active Substance: SUCRALFATE
  8. TOVIUZ [Concomitant]
  9. LIALDA [Concomitant]
     Active Substance: MESALAMINE
  10. VITAMIN B12 [Concomitant]
     Active Substance: CYANOCOBALAMIN
  11. RESTASIS [Concomitant]
     Active Substance: CYCLOSPORINE
  12. ACTELIN [Concomitant]
  13. CARDIZEM [Concomitant]
     Active Substance: DILTIAZEM HYDROCHLORIDE
  14. NAPROXEN. [Concomitant]
     Active Substance: NAPROXEN
  15. NEXIUM [Concomitant]
     Active Substance: ESOMEPRAZOLE MAGNESIUM
  16. PREPARATION 4 [Concomitant]
  17. CETIRIZINE [Concomitant]
     Active Substance: CETIRIZINE HYDROCHLORIDE
  18. OSCAL [Concomitant]
     Active Substance: CALCIUM CARBONATE
  19. NEXIUM [Concomitant]
     Active Substance: ESOMEPRAZOLE MAGNESIUM
  20. MOTRIN [Concomitant]
     Active Substance: IBUPROFEN

REACTIONS (6)
  - Dysarthria [None]
  - Headache [None]
  - Head discomfort [None]
  - Vertigo [None]
  - Gait disturbance [None]
  - Confusional state [None]

NARRATIVE: CASE EVENT DATE: 20150703
